FAERS Safety Report 21932501 (Version 8)
Quarter: 2024Q1

REPORT INFORMATION
  Report Type: Spontaneous
  Country: CA (occurrence: CA)
  Receive Date: 20230131
  Receipt Date: 20240212
  Transmission Date: 20240410
  Serious: Yes (Hospitalization)
  Sender: FDA-Public Use
  Company Number: CA-PFIZER INC-202101466847

PATIENT
  Age: 19 Year
  Sex: Female
  Weight: 45 kg

DRUGS (14)
  1. RUXIENCE [Suspect]
     Active Substance: RITUXIMAB-PVVR
     Indication: Granulomatosis with polyangiitis
     Dosage: 1 G X2 DAY 1 AND DAY 15 OR 21 OR 28
     Route: 042
     Dates: start: 20211130
  2. RUXIENCE [Suspect]
     Active Substance: RITUXIMAB-PVVR
     Indication: Microscopic polyangiitis
     Dosage: 1 G X2 DAY 1 AND DAY 15 OR 21 OR 28
     Route: 042
     Dates: start: 20211130, end: 20211220
  3. RUXIENCE [Suspect]
     Active Substance: RITUXIMAB-PVVR
     Dosage: 1 G X2 DAY 1 AND DAY 15 OR 21 OR 28
     Route: 042
     Dates: start: 20211220, end: 20211220
  4. RUXIENCE [Suspect]
     Active Substance: RITUXIMAB-PVVR
     Dosage: 1000 MG, 1 DOSE
     Route: 042
     Dates: start: 20220413, end: 20220413
  5. RUXIENCE [Suspect]
     Active Substance: RITUXIMAB-PVVR
     Dosage: 500 MG, SINGLE DOSE
     Route: 042
     Dates: start: 20220804, end: 20220804
  6. RUXIENCE [Suspect]
     Active Substance: RITUXIMAB-PVVR
     Dosage: 500 MG, SINGLE DOSE
     Route: 042
     Dates: start: 20230125, end: 20230125
  7. RUXIENCE [Suspect]
     Active Substance: RITUXIMAB-PVVR
     Dosage: 500 MG, SINGLE DOSE
     Route: 042
     Dates: start: 20230804, end: 20230804
  8. RUXIENCE [Suspect]
     Active Substance: RITUXIMAB-PVVR
     Dosage: 500 MG, EVERY 6 MONTH (DAY 1 RETREATMENT)
     Route: 042
     Dates: start: 20240206
  9. ACETAMINOPHEN [Concomitant]
     Active Substance: ACETAMINOPHEN
     Indication: Premedication
     Dosage: UNK
     Dates: start: 20211220, end: 20211220
  10. IMURAN [Concomitant]
     Active Substance: AZATHIOPRINE
     Dosage: 100 MG
     Dates: start: 20220504
  11. METHYLPREDNISOLONE [Concomitant]
     Active Substance: METHYLPREDNISOLONE
     Indication: Premedication
     Dosage: UNK
     Dates: start: 20211220, end: 20211220
  12. PREDNISONE [Concomitant]
     Active Substance: PREDNISONE
     Dosage: 30 MG
     Dates: start: 20211129
  13. PREDNISONE [Concomitant]
     Active Substance: PREDNISONE
     Dosage: 30 MG, ONE DAY BEFORE INFUSION
  14. CETIRIZINE HYDROCHLORIDE [Concomitant]
     Active Substance: CETIRIZINE HYDROCHLORIDE
     Indication: Premedication
     Dosage: 10 MG
     Dates: start: 20211130, end: 20211130

REACTIONS (8)
  - Obstructive airways disorder [Recovered/Resolved]
  - Blood pressure decreased [Unknown]
  - Weight decreased [Unknown]
  - COVID-19 [Recovered/Resolved]
  - Off label use [Unknown]
  - Off label use [Unknown]
  - Intentional product use issue [Unknown]
  - Product use issue [Unknown]

NARRATIVE: CASE EVENT DATE: 20211130
